FAERS Safety Report 7025460-1 (Version None)
Quarter: 2010Q4

REPORT INFORMATION
  Report Type: 
  Country: None (occurrence: None)
  Receive Date: 20101001
  Receipt Date: 20100916
  Transmission Date: 20110411
  Serious: Yes (Other)
  Sender: FDA-Public Use
  Company Number: GB-GENENTECH-307438

PATIENT
  Sex: Female
  Weight: 113.1 kg

DRUGS (2)
  1. XOLAIR [Suspect]
     Indication: ASTHMA
     Dosage: 600 MG, Q2W
     Route: 058
     Dates: start: 20100525, end: 20100622
  2. XOLAIR [Suspect]
     Dosage: UNK
     Route: 058
     Dates: start: 20100824, end: 20100907

REACTIONS (2)
  - ASTHMA [None]
  - HYPOAESTHESIA [None]
